FAERS Safety Report 9953866 (Version 2)
Quarter: 2014Q2

REPORT INFORMATION
  Report Type: Spontaneous
  Country: FR (occurrence: FR)
  Receive Date: 20140304
  Receipt Date: 20140401
  Transmission Date: 20141212
  Serious: Yes (Life-Threatening, Hospitalization)
  Sender: FDA-Public Use
  Company Number: FR-B.I. PHARMACEUTICALS,INC./RIDGEFIELD-2014-BI-09432FF

PATIENT
  Age: 70 Year
  Sex: Male
  Weight: 76 kg

DRUGS (3)
  1. PRADAXA [Suspect]
     Indication: PRODUCT USED FOR UNKNOWN INDICATION
     Dosage: 220 MG
     Route: 065
     Dates: end: 20140217
  2. TAHOR 40 [Concomitant]
     Route: 065
  3. TAREG 80 [Concomitant]
     Route: 065

REACTIONS (6)
  - Haemorrhagic cerebral infarction [Recovered/Resolved]
  - Malaise [Unknown]
  - Fall [Unknown]
  - Injury [Unknown]
  - Pyrexia [Unknown]
  - Cough [Unknown]
